FAERS Safety Report 15849279 (Version 1)
Quarter: 2019Q1

REPORT INFORMATION
  Report Type: Spontaneous
  Country: BR (occurrence: BR)
  Receive Date: 20190121
  Receipt Date: 20190121
  Transmission Date: 20190417
  Serious: Yes (Other)
  Sender: FDA-Public Use
  Company Number: BR-SA-2018SA035639

PATIENT
  Sex: Female
  Weight: 63 kg

DRUGS (1)
  1. CLEXANE [Suspect]
     Active Substance: ENOXAPARIN SODIUM
     Indication: PROPHYLAXIS
     Dosage: 60 MG, QD
     Route: 065
     Dates: end: 201808

REACTIONS (5)
  - Placental necrosis [Unknown]
  - Carpal tunnel syndrome [Unknown]
  - Product use issue [Unknown]
  - Pain [Recovered/Resolved]
  - Exposure during pregnancy [Unknown]
